FAERS Safety Report 5727398-6 (Version None)
Quarter: 2008Q2

REPORT INFORMATION
  Report Type: 
  Country: None (occurrence: None)
  Receive Date: 20080430
  Receipt Date: 20080418
  Transmission Date: 20081010
  Serious: Yes (Hospitalization, Other)
  Sender: FDA-Public Use
  Company Number: PHHO2008US05041

PATIENT
  Age: 53 Year
  Sex: Female

DRUGS (7)
  1. ABF656+RIBAVIRIN VS PEGASYS+RIBAVIRIN [Suspect]
     Indication: HEPATITIS C
     Dosage: 180 MG, QW, SUBCUTANEOUS
     Route: 058
     Dates: start: 20070817, end: 20070909
  2. ABF656+RIBAVIRIN VS PEGASYS+RIBAVIRIN [Suspect]
     Indication: HEPATITIS C
     Dosage: ORAL
     Route: 048
     Dates: start: 20070817, end: 20070909
  3. METOPROLOL SUCCINATE EXTENDED RELEASE [Suspect]
  4. CLONAZEPAM [Concomitant]
  5. MIRTAZAPINE [Concomitant]
  6. OXCARBAZEPINE [Concomitant]
  7. LEVOTHYROXINE SODIUM [Concomitant]

REACTIONS (9)
  - CHEST DISCOMFORT [None]
  - DEHYDRATION [None]
  - DIZZINESS [None]
  - DYSPNOEA [None]
  - ELECTROCARDIOGRAM QT PROLONGED [None]
  - HEADACHE [None]
  - NAUSEA [None]
  - REFUSAL OF TREATMENT BY PATIENT [None]
  - VERTIGO [None]
